FAERS Safety Report 7404521-9 (Version None)
Quarter: 2011Q2

REPORT INFORMATION
  Report Type: 
  Country: None (occurrence: None)
  Receive Date: 20110410
  Receipt Date: 20110401
  Transmission Date: 20111010
  Serious: Yes (Hospitalization, Other)
  Sender: FDA-Public Use
  Company Number: ES-BRISTOL-MYERS SQUIBB COMPANY-15651110

PATIENT
  Sex: Female

DRUGS (1)
  1. IPILIMUMAB [Suspect]
     Indication: MALIGNANT MELANOMA
     Dosage: 1ST DOSE

REACTIONS (4)
  - PERIPHERAL SENSORY NEUROPATHY [None]
  - FACE OEDEMA [None]
  - PERIPHERAL MOTOR NEUROPATHY [None]
  - ASTHENIA [None]
